FAERS Safety Report 16020431 (Version 2)
Quarter: 2019Q1

REPORT INFORMATION
  Report Type: Spontaneous
  Country: FR (occurrence: FR)
  Receive Date: 20190301
  Receipt Date: 20190311
  Transmission Date: 20190418
  Serious: Yes (Hospitalization, Other)
  Sender: FDA-Public Use
  Company Number: FR-AUROBINDO-AUR-APL-2019-009865

PATIENT

DRUGS (8)
  1. ONDANSETRON [Concomitant]
     Active Substance: ONDANSETRON
     Indication: PREMEDICATION
     Dosage: 8 MILLIGRAM
     Route: 042
     Dates: start: 20190205, end: 20190205
  2. CARBOPLATIN. [Suspect]
     Active Substance: CARBOPLATIN
     Indication: PRODUCT USED FOR UNKNOWN INDICATION
     Dosage: UNK
     Route: 065
  3. RANITIDINE. [Suspect]
     Active Substance: RANITIDINE
     Indication: PREMEDICATION
     Dosage: 50 MILLIGRAM
     Route: 042
     Dates: start: 20190205
  4. EMEND [Suspect]
     Active Substance: APREPITANT
     Indication: PRODUCT USED FOR UNKNOWN INDICATION
     Dosage: 125 MG, 80 MG AND 80 MG
     Route: 065
  5. CARBOPLATIN. [Suspect]
     Active Substance: CARBOPLATIN
     Indication: UTERINE CANCER
     Dosage: 650 MILLIGRAM
     Route: 042
     Dates: start: 20190205, end: 20190205
  6. METHYLPREDNISOLONE. [Suspect]
     Active Substance: METHYLPREDNISOLONE
     Indication: PREMEDICATION
     Dosage: 125 MILLIGRAM
     Route: 042
     Dates: start: 20190205
  7. EMEND [Suspect]
     Active Substance: APREPITANT
     Indication: PREMEDICATION
     Dosage: 125 MILLIGRAM, ONCE A DAY(125 MILLIGRAM, ORAL AT DAY 1)
     Route: 048
     Dates: start: 20190205
  8. PACLITAXEL. [Suspect]
     Active Substance: PACLITAXEL
     Indication: PRODUCT USED FOR UNKNOWN INDICATION
     Dosage: UNK
     Route: 065

REACTIONS (4)
  - Urticaria [Unknown]
  - Toxic skin eruption [Unknown]
  - Eczema [Recovered/Resolved]
  - Product colour issue [Unknown]

NARRATIVE: CASE EVENT DATE: 20190205
